FAERS Safety Report 7817072-4 (Version None)
Quarter: 2011Q4

REPORT INFORMATION
  Report Type: 
  Country: None (occurrence: None)
  Receive Date: 20111017
  Receipt Date: 20111007
  Transmission Date: 20120403
  Serious: Yes (Other)
  Sender: FDA-Public Use
  Company Number: PHHY2011FR89210

PATIENT
  Age: 7 Year
  Sex: Female
  Weight: 24.8 kg

DRUGS (2)
  1. RITALIN [Suspect]
     Dosage: 40 MG, DAILY
  2. RITALIN [Suspect]
     Dosage: 80 MG, DAILY

REACTIONS (4)
  - OVERDOSE [None]
  - DECREASED APPETITE [None]
  - STEREOTYPY [None]
  - WEIGHT DECREASED [None]
